FAERS Safety Report 7920132-0 (Version None)
Quarter: 2011Q4

REPORT INFORMATION
  Report Type: 
  Country: None (occurrence: None)
  Receive Date: 20111117
  Receipt Date: 20111110
  Transmission Date: 20120403
  Serious: Yes (Hospitalization)
  Sender: FDA-Public Use
  Company Number: EG-SANOFI-AVENTIS-2011SA074645

PATIENT
  Age: 65 Year
  Sex: Male

DRUGS (3)
  1. LANTUS [Suspect]
     Dosage: DOSE:20 UNIT(S)
     Route: 058
     Dates: start: 20110213
  2. LANTUS [Suspect]
     Dosage: DOSE:25 UNIT(S)
     Route: 058
  3. LANTUS [Suspect]
     Dosage: DOSE:22 UNIT(S)
     Route: 058
     Dates: end: 20111015

REACTIONS (1)
  - DIABETIC HYPERGLYCAEMIC COMA [None]
